FAERS Safety Report 18501072 (Version 2)
Quarter: 2020Q4

REPORT INFORMATION
  Report Type: Spontaneous
  Country: TR (occurrence: TR)
  Receive Date: 20201113
  Receipt Date: 20201123
  Transmission Date: 20210114
  Serious: Yes (Life-Threatening, Other)
  Sender: FDA-Public Use
  Company Number: TR-ACCORD-207773

PATIENT
  Age: 7 Year
  Sex: Female

DRUGS (2)
  1. TACROLIMUS. [Suspect]
     Active Substance: TACROLIMUS
     Indication: IMMUNOSUPPRESSION
  2. METHYLPREDNISOLONE. [Concomitant]
     Active Substance: METHYLPREDNISOLONE
     Indication: IMMUNOSUPPRESSION
     Dosage: DOSE WAS?DECREASED TO 2 MG/KG/DAY AT THE END OF THE FIRST WEEK
     Route: 042

REACTIONS (2)
  - Kaposi^s sarcoma [Recovered/Resolved]
  - Pancytopenia [Recovered/Resolved]
